FAERS Safety Report 5839274-9 (Version None)
Quarter: 2008Q3

REPORT INFORMATION
  Report Type: 
  Country: None (occurrence: None)
  Receive Date: 20080808
  Receipt Date: 20080729
  Transmission Date: 20090109
  Serious: Yes (Other)
  Sender: FDA-Public Use
  Company Number: US-PFIZER INC-2008063629

PATIENT
  Sex: Male
  Weight: 114 kg

DRUGS (3)
  1. CHANTIX [Suspect]
     Indication: SMOKING CESSATION THERAPY
     Route: 048
     Dates: start: 20080701, end: 20080701
  2. METOPROLOL SUCCINATE [Concomitant]
     Indication: HYPERTENSION
  3. HYDROCODONE BITARTRATE [Concomitant]
     Indication: HYPERTENSION

REACTIONS (1)
  - CARDIOVASCULAR DISORDER [None]
